FAERS Safety Report 16029638 (Version 1)
Quarter: 2019Q1

REPORT INFORMATION
  Report Type: Other
  Country: DE (occurrence: DE)
  Receive Date: 20190304
  Receipt Date: 20190304
  Transmission Date: 20190418
  Serious: Yes (Other)
  Sender: FDA-Public Use
  Company Number: DE-APOTEX-2019AP008685

PATIENT
  Age: 26 Year
  Sex: Male

DRUGS (9)
  1. RIVOTRIL [Concomitant]
     Active Substance: CLONAZEPAM
     Indication: HUNTINGTON^S DISEASE
     Dosage: AT NIGHT
     Route: 065
  2. DRONABINOL. [Suspect]
     Active Substance: DRONABINOL
     Dosage: 1-1-1 DROPS DAILY (EQUIVALENT TO 2.2MG DAILY)
     Route: 065
  3. PAROXETINE. [Concomitant]
     Active Substance: PAROXETINE
     Indication: HUNTINGTON^S DISEASE
     Route: 065
  4. OLANZAPINE. [Suspect]
     Active Substance: OLANZAPINE
     Indication: PSYCHOTIC DISORDER
     Dosage: UNK
     Route: 065
  5. DRONABINOL. [Suspect]
     Active Substance: DRONABINOL
     Indication: HUNTINGTON^S DISEASE
     Dosage: 2.2 MG, QD
     Route: 065
  6. LEVODOPA/BENSERAZIDE [Suspect]
     Active Substance: BENSERAZIDE\LEVODOPA
     Indication: PARKINSONISM
     Dosage: UNK, TID
     Route: 065
  7. CLOZAPINE. [Concomitant]
     Active Substance: CLOZAPINE
     Indication: PSYCHOTIC DISORDER
     Route: 065
  8. AMISULPRIDE [Suspect]
     Active Substance: AMISULPRIDE
     Indication: PSYCHOTIC DISORDER
     Dosage: UNK
     Route: 065
  9. RISPERIDONE. [Suspect]
     Active Substance: RISPERIDONE
     Indication: PSYCHOTIC DISORDER
     Route: 065

REACTIONS (2)
  - Psychotic disorder [Recovering/Resolving]
  - Drug ineffective [Unknown]
